FAERS Safety Report 16362873 (Version 2)
Quarter: 2019Q2

REPORT INFORMATION
  Report Type: Report from Study
  Country: US (occurrence: US)
  Receive Date: 20190528
  Receipt Date: 20190625
  Transmission Date: 20190711
  Serious: Yes (Other)
  Sender: FDA-Public Use
  Company Number: PHHY2019US116878

PATIENT
  Age: 44 Year
  Sex: Female

DRUGS (3)
  1. GILENYA [Suspect]
     Active Substance: FINGOLIMOD HYDROCHLORIDE
     Indication: MULTIPLE SCLEROSIS
     Dosage: UNK, QD
     Route: 048
  2. PROPRANOLOL HCL [Concomitant]
     Active Substance: PROPRANOLOL HYDROCHLORIDE
     Indication: HYPERTENSION
     Dosage: 40 MG, BID
     Route: 065
     Dates: start: 20190405
  3. VITAMIN D [Concomitant]
     Active Substance: VITAMIN D NOS
     Indication: VITAMIN D DEFICIENCY
     Dosage: 50000 U, UNK
     Route: 065

REACTIONS (13)
  - Tremor [Unknown]
  - Lymphocyte count decreased [Unknown]
  - Blister [Unknown]
  - Blindness unilateral [Unknown]
  - Balance disorder [Unknown]
  - Trigeminal neuralgia [Recovered/Resolved]
  - Eye pain [Unknown]
  - Amnesia [Unknown]
  - Gait disturbance [Unknown]
  - Fatigue [Unknown]
  - Blood alkaline phosphatase increased [Unknown]
  - Diplopia [Unknown]
  - Dyschromatopsia [Unknown]

NARRATIVE: CASE EVENT DATE: 20181203
